FAERS Safety Report 15206450 (Version 1)
Quarter: 2018Q3

REPORT INFORMATION
  Report Type: Spontaneous
  Country: US (occurrence: US)
  Receive Date: 20180727
  Receipt Date: 20180727
  Transmission Date: 20181010
  Serious: Yes (Hospitalization, Other)
  Sender: FDA-Public Use
  Company Number: US-ZYDUS-020915

PATIENT
  Age: 57 Year
  Sex: Female

DRUGS (6)
  1. PROTRIPTYLINE/PROTRIPTYLINE HYDROCHLORIDE [Concomitant]
     Indication: ANTIDEPRESSANT THERAPY
     Route: 065
  2. AMANTADINE. [Suspect]
     Active Substance: AMANTADINE HYDROCHLORIDE
     Indication: ANTIDEPRESSANT THERAPY
     Route: 065
  3. DULOXETINE/DULOXETINE HYDROCHLORIDE [Concomitant]
     Indication: ANTIDEPRESSANT THERAPY
     Route: 065
  4. DONEPEZIL/DONEPEZIL HYDROCHLORIDE [Concomitant]
     Indication: ANTIDEPRESSANT THERAPY
     Route: 065
  5. AMANTADINE. [Suspect]
     Active Substance: AMANTADINE HYDROCHLORIDE
     Indication: ANTIDEPRESSANT THERAPY
     Route: 065
  6. TRAZODONE [Concomitant]
     Active Substance: TRAZODONE HYDROCHLORIDE
     Indication: ANTIDEPRESSANT THERAPY
     Route: 065

REACTIONS (8)
  - Off label use [Unknown]
  - Respiratory failure [Recovering/Resolving]
  - Agitation [Recovering/Resolving]
  - Toxicity to various agents [Unknown]
  - Asthenia [Recovering/Resolving]
  - Tremor [Recovering/Resolving]
  - Encephalopathy [Recovering/Resolving]
  - Prescribed overdose [Unknown]
